FAERS Safety Report 21674491 (Version 3)
Quarter: 2023Q1

REPORT INFORMATION
  Report Type: Spontaneous
  Country: US (occurrence: US)
  Receive Date: 20221202
  Receipt Date: 20230109
  Transmission Date: 20230417
  Serious: No
  Sender: FDA-Public Use
  Company Number: US-PFIZER INC-202201343688

PATIENT
  Age: 69 Year
  Sex: Female
  Weight: 62.14 kg

DRUGS (2)
  1. PREMARIN [Suspect]
     Active Substance: ESTROGENS, CONJUGATED
     Indication: Autonomic nervous system imbalance
     Dosage: UNK (ORAL 0.5 OR 0.625MG, DON^T REMEMBER)
     Route: 048
  2. PREMARIN [Suspect]
     Active Substance: ESTROGENS, CONJUGATED
     Indication: Menopausal symptoms

REACTIONS (4)
  - Angiopathy [Unknown]
  - Condition aggravated [Unknown]
  - Illness [Unknown]
  - Off label use [Unknown]
